FAERS Safety Report 4809241-2 (Version None)
Quarter: 2005Q4

REPORT INFORMATION
  Report Type: 
  Country: None (occurrence: None)
  Receive Date: 20051021
  Receipt Date: 20020318
  Transmission Date: 20060501
  Serious: No
  Sender: FDA-Public Use
  Company Number: GBS020310416

PATIENT
  Age: 28 Year
  Sex: Male

DRUGS (1)
  1. OLANZAPINE-ORAL (OLANZAPINE) [Suspect]
     Indication: SCHIZOPHRENIA

REACTIONS (1)
  - NEUTROPHIL COUNT DECREASED [None]
